FAERS Safety Report 10263475 (Version 1)
Quarter: 2014Q2

REPORT INFORMATION
  Report Type: Spontaneous
  Country: US (occurrence: US)
  Receive Date: 20140626
  Receipt Date: 20140626
  Transmission Date: 20141212
  Serious: No
  Sender: FDA-Public Use
  Company Number: US-ASTRAZENECA-2014SE30393

PATIENT
  Age: 50 Year
  Sex: Male

DRUGS (6)
  1. BRILINTA [Suspect]
     Indication: ANGINA UNSTABLE
     Route: 048
  2. ASPIRIN [Concomitant]
  3. ENALAPRIL [Concomitant]
  4. LIPATOR [Concomitant]
  5. NITROGLYCERIN [Concomitant]
     Indication: STENT PLACEMENT
  6. VERAPAMIL [Concomitant]
     Indication: STENT PLACEMENT

REACTIONS (1)
  - Gout [Unknown]
